FAERS Safety Report 21463278 (Version 3)
Quarter: 2023Q2

REPORT INFORMATION
  Report Type: Report from Study
  Country: US (occurrence: US)
  Receive Date: 20221017
  Receipt Date: 20230411
  Transmission Date: 20230722
  Serious: Yes (Death, Hospitalization, Other)
  Sender: FDA-Public Use
  Company Number: US-ABBVIE-22K-163-4221126-00

PATIENT
  Age: 75 Year
  Sex: Male

DRUGS (2)
  1. IMBRUVICA [Suspect]
     Active Substance: IBRUTINIB
     Indication: Waldenstrom^s macroglobulinaemia
     Route: 048
     Dates: start: 2022
  2. IMBRUVICA [Suspect]
     Active Substance: IBRUTINIB
     Indication: Waldenstrom^s macroglobulinaemia
     Route: 048
     Dates: start: 20210126, end: 202212

REACTIONS (5)
  - Cardiac failure congestive [Fatal]
  - Lower limb fracture [Not Recovered/Not Resolved]
  - Urinary tract infection [Recovering/Resolving]
  - Localised infection [Fatal]
  - Fall [Unknown]

NARRATIVE: CASE EVENT DATE: 20220601
